FAERS Safety Report 19968853 (Version 1)
Quarter: 2021Q4

REPORT INFORMATION
  Report Type: Spontaneous
  Country: US (occurrence: US)
  Receive Date: 20211019
  Receipt Date: 20211019
  Transmission Date: 20220303
  Serious: Yes (Hospitalization)
  Sender: FDA-Public Use
  Company Number: None

PATIENT
  Age: 64 Year
  Sex: Male
  Weight: 112.7 kg

DRUGS (3)
  1. OXYCODONE [Suspect]
     Active Substance: OXYCODONE
     Indication: Cancer pain
     Route: 048
     Dates: start: 20210917, end: 20210920
  2. HYDROCODONE [Concomitant]
     Active Substance: HYDROCODONE
     Dates: start: 20210917, end: 20210920
  3. GABAPENTIN [Concomitant]
     Active Substance: GABAPENTIN
     Dates: start: 20180501

REACTIONS (5)
  - Accidental overdose [None]
  - Sedation [None]
  - Respiratory rate decreased [None]
  - Miosis [None]
  - Hyporesponsive to stimuli [None]

NARRATIVE: CASE EVENT DATE: 20210920
